FAERS Safety Report 6697486-9 (Version None)
Quarter: 2010Q2

REPORT INFORMATION
  Report Type: 
  Country: None (occurrence: None)
  Receive Date: 20100422
  Receipt Date: 20100407
  Transmission Date: 20101027
  Serious: Yes (Life-Threatening, Other)
  Sender: FDA-Public Use
  Company Number: A-US2009-27802

PATIENT
  Age: 80 Year
  Sex: Female

DRUGS (5)
  1. TRACLEER [Suspect]
     Indication: PULMONARY ARTERIAL HYPERTENSION
     Dosage: 62.5 MG, BID
     Dates: start: 20060315, end: 20100311
  2. TRACLEER [Suspect]
  3. REVATIO (SILFENAFIL CITRATE) [Concomitant]
  4. CALCIUM CHANNEL BLOCKERS [Concomitant]
  5. COUMADIN [Concomitant]

REACTIONS (1)
  - HEPATIC CIRRHOSIS [None]
